FAERS Safety Report 24029448 (Version 1)
Quarter: 2024Q2

REPORT INFORMATION
  Report Type: Spontaneous
  Country: DE (occurrence: DE)
  Receive Date: 20240628
  Receipt Date: 20240628
  Transmission Date: 20240715
  Serious: Yes (Congenital Anomaly, Other)
  Sender: FDA-Public Use
  Company Number: None

PATIENT
  Sex: Female
  Weight: 3 kg

DRUGS (6)
  1. ESCITALOPRAM [Suspect]
     Active Substance: ESCITALOPRAM OXALATE
     Indication: Product used for unknown indication
     Dosage: MOTHER TOOK: 20 MG/D INCREASED IN THE COURSE OF PREGNANCY 15 TO 20 MG/D
     Route: 064
  2. IBUPROFEN [Concomitant]
     Active Substance: IBUPROFEN
     Indication: Product used for unknown indication
     Dosage: MOTHER: 400 MG/D, 200-400 MG/D 1-2X PER WEEK
     Route: 064
  3. ACETAMINOPHEN [Concomitant]
     Active Substance: ACETAMINOPHEN
     Indication: Product used for unknown indication
     Dosage: MOTHER: 1000 [MG/D (1-2X/WK) ]
     Route: 064
  4. PROMETHAZINE [Concomitant]
     Active Substance: PROMETHAZINE HYDROCHLORIDE
     Indication: Product used for unknown indication
     Dosage: MOTHER: 25 MG/D, STARTED AT GW 28.4 FOR AT LEAST 3 WEEKS, STOPPED BECAUSE
     Route: 064
  5. Rennie [Concomitant]
     Indication: Product used for unknown indication
     Dosage: MOTHER NEEDED ALMOST DAILY
     Route: 064
  6. Tavor [Concomitant]
     Indication: Product used for unknown indication
     Dosage: MOTHER TOOK 1MG/D SPORADICALLY, 0.5-1 MG TWICE A WEEK
     Route: 064

REACTIONS (4)
  - Foetal exposure during pregnancy [Unknown]
  - Atrial septal defect [Recovering/Resolving]
  - Mitral valve incompetence [Unknown]
  - Ventricular septal defect [Recovering/Resolving]
